FAERS Safety Report 7825564-7 (Version None)
Quarter: 2011Q4

REPORT INFORMATION
  Report Type: 
  Country: None (occurrence: None)
  Receive Date: 20111019
  Receipt Date: 20111013
  Transmission Date: 20120403
  Serious: Yes (Hospitalization)
  Sender: FDA-Public Use
  Company Number: US-ABBOTT-11P-163-0850572-00

PATIENT
  Sex: Female
  Weight: 104.87 kg

DRUGS (10)
  1. VESICARE [Concomitant]
     Indication: URINARY INCONTINENCE
  2. FOLIC ACID [Concomitant]
  3. PREMPRO [Concomitant]
     Indication: HOT FLUSH
     Dosage: 0.45/1.5MG DAILY
  4. FOLIC ACID [Concomitant]
     Indication: PRODUCT USED FOR UNKNOWN INDICATION
     Dates: start: 20111013
  5. LISINOPRIL HCTZ 10 [Concomitant]
     Indication: HYPERTENSION
     Dosage: 10-125MG DAILY
  6. HUMIRA [Suspect]
     Indication: RHEUMATOID ARTHRITIS
     Dates: start: 20110401, end: 20110401
  7. VIT D2 [Concomitant]
     Indication: PRODUCT USED FOR UNKNOWN INDICATION
  8. METHOTREXATE [Concomitant]
     Indication: PRODUCT USED FOR UNKNOWN INDICATION
     Dosage: SEVEN TABLETS WEEKLY
  9. HUMIRA [Suspect]
     Dates: start: 20110808, end: 20110901
  10. PANTOPRAZOLE [Concomitant]
     Indication: GASTROOESOPHAGEAL REFLUX DISEASE

REACTIONS (11)
  - DRUG DOSE OMISSION [None]
  - HYPERTENSION [None]
  - FLUID OVERLOAD [None]
  - FLUID RETENTION [None]
  - NECK PAIN [None]
  - UNEVALUABLE EVENT [None]
  - GAIT DISTURBANCE [None]
  - OEDEMA PERIPHERAL [None]
  - HEADACHE [None]
  - ASTHENIA [None]
  - VENOUS INSUFFICIENCY [None]
